FAERS Safety Report 16026502 (Version 1)
Quarter: 2019Q1

REPORT INFORMATION
  Report Type: Spontaneous
  Country: US (occurrence: US)
  Receive Date: 20190302
  Receipt Date: 20190302
  Transmission Date: 20190418
  Serious: No
  Sender: FDA-Public Use
  Company Number: US-TARO-2019TAR00039

PATIENT
  Age: 56 Year
  Sex: Female
  Weight: 95.24 kg

DRUGS (5)
  1. VITAMINS [Concomitant]
     Active Substance: VITAMINS
  2. DIET PILL [Concomitant]
  3. BUMEX [Concomitant]
     Active Substance: BUMETANIDE
  4. TERCONAZOLE VAGINAL CREAM 0.4% [Suspect]
     Active Substance: TERCONAZOLE
     Dosage: 1 APPLICATORFUL, 1X/DAY
     Route: 067
     Dates: start: 20181108, end: 20181109
  5. TERCONAZOLE VAGINAL CREAM 0.4% [Suspect]
     Active Substance: TERCONAZOLE
     Indication: FUNGAL INFECTION
     Dosage: 1 APPLICATORFUL, 1X/DAY
     Route: 067
     Dates: start: 20181024, end: 20181024

REACTIONS (4)
  - Vaginal odour [Not Recovered/Not Resolved]
  - Accidental exposure to product [Recovered/Resolved]
  - Product quality issue [Recovered/Resolved]
  - Condition aggravated [Not Recovered/Not Resolved]

NARRATIVE: CASE EVENT DATE: 20181024
